FAERS Safety Report 9443665 (Version 2)
Quarter: 2013Q4

REPORT INFORMATION
  Report Type: Spontaneous
  Country: JP (occurrence: JP)
  Receive Date: 20130806
  Receipt Date: 20131008
  Transmission Date: 20140711
  Serious: Yes (Other)
  Sender: FDA-Public Use
  Company Number: JP-SUCAMPO PHARMA AMERICAS, INC-SPI201300557

PATIENT
  Age: 68 Year
  Sex: Female

DRUGS (4)
  1. AMITIZA [Suspect]
     Indication: CONSTIPATION
     Dosage: 24 MCG, QD
     Route: 048
     Dates: start: 20130724, end: 20130724
  2. MAGMITT [Concomitant]
     Indication: CONSTIPATION
     Dosage: 1.98 G, TID
     Route: 048
     Dates: start: 20051019, end: 20130724
  3. PURSENNID [Concomitant]
     Dosage: 48 MG, QD
     Route: 048
     Dates: start: 20051019, end: 20130725
  4. DAI O KANZO TO [Concomitant]
     Indication: CONSTIPATION
     Dosage: UNK

REACTIONS (4)
  - Diarrhoea [Recovered/Resolved]
  - Vomiting [Recovering/Resolving]
  - Cold sweat [Recovered/Resolved]
  - Hypotension [Recovered/Resolved]
